FAERS Safety Report 6854910-6 (Version None)
Quarter: 2010Q3

REPORT INFORMATION
  Report Type: 
  Country: None (occurrence: None)
  Receive Date: 20100717
  Receipt Date: 20080220
  Transmission Date: 20110219
  Serious: No
  Sender: FDA-Public Use
  Company Number: US-PFIZER INC-2007107874

PATIENT
  Sex: Female

DRUGS (10)
  1. CHANTIX [Suspect]
  2. TOPAMAX [Concomitant]
  3. NEURONTIN [Concomitant]
  4. LEXAPRO [Concomitant]
  5. ACIPHEX [Concomitant]
  6. MOBIC [Concomitant]
  7. NEXIUM [Concomitant]
  8. DARVOCET [Concomitant]
  9. LEVOTHYROXINE SODIUM [Concomitant]
  10. ALL OTHER THERAPEUTIC PRODUCTS [Concomitant]

REACTIONS (3)
  - DIZZINESS [None]
  - NAUSEA [None]
  - NECK PAIN [None]
